FAERS Safety Report 23699189 (Version 1)
Quarter: 2024Q2

REPORT INFORMATION
  Report Type: Spontaneous
  Country: US (occurrence: US)
  Receive Date: 20240402
  Receipt Date: 20240402
  Transmission Date: 20240716
  Serious: No
  Sender: FDA-Public Use
  Company Number: US-THEA-2023000866

PATIENT
  Sex: Female

DRUGS (6)
  1. ZIOPTAN [Suspect]
     Active Substance: TAFLUPROST
     Indication: Glaucoma
     Dosage: BOTH EYES
     Route: 047
     Dates: start: 2015, end: 20230509
  2. ZIOPTAN [Suspect]
     Active Substance: TAFLUPROST
     Indication: Glaucoma
     Dosage: BOTH EYES
     Route: 047
     Dates: start: 2015, end: 20230509
  3. MELATONIN [Concomitant]
     Active Substance: MELATONIN
     Indication: Product used for unknown indication
  4. CALCIUM [Concomitant]
     Active Substance: CALCIUM
     Indication: Product used for unknown indication
  5. VITAMINS [Concomitant]
     Active Substance: VITAMINS
     Indication: Product used for unknown indication
  6. MAGNESIUM [Concomitant]
     Active Substance: MAGNESIUM
     Indication: Product used for unknown indication

REACTIONS (3)
  - Eye pruritus [Unknown]
  - Dry eye [Unknown]
  - Lacrimation decreased [Unknown]
